FAERS Safety Report 17440819 (Version 1)
Quarter: 2020Q1

REPORT INFORMATION
  Report Type: Spontaneous
  Country: GB (occurrence: GB)
  Receive Date: 20200220
  Receipt Date: 20200220
  Transmission Date: 20200409
  Serious: Yes (Other)
  Sender: FDA-Public Use
  Company Number: GB-PFIZER INC-2020072613

PATIENT
  Age: 85 Year
  Sex: Female
  Weight: 79.4 kg

DRUGS (5)
  1. LACTULOSE. [Concomitant]
     Active Substance: LACTULOSE
     Dosage: 30 ML, DAILY ( 3.1-3.7G/5ML)
     Route: 048
     Dates: start: 20191112
  2. GABAPENTIN. [Suspect]
     Active Substance: GABAPENTIN
     Indication: ARTHRALGIA
     Dosage: UNK
     Route: 048
     Dates: start: 20191231
  3. STEXEROL D3 [Concomitant]
     Dosage: 1 DF, DAILY
     Dates: start: 20191210
  4. ORAMORPH SR SUSTAINED RELEASE [Concomitant]
     Active Substance: MORPHINE SULFATE
     Indication: PAIN
     Dosage: AS NEEDED (2.5-5ML 3-4 HOURLY WHEN REQUIRED)
     Route: 048
     Dates: start: 20191112
  5. TRAMADOL. [Concomitant]
     Active Substance: TRAMADOL
     Dosage: AS NEEDED (1-2 4-6 HOURLY MAXIMUM OF 8 IN 24 HOURS)
     Dates: start: 20191126

REACTIONS (3)
  - Off label use [Unknown]
  - Product use in unapproved indication [Unknown]
  - Hallucination [Recovered/Resolved]

NARRATIVE: CASE EVENT DATE: 20191231
